FAERS Safety Report 5759322-4 (Version None)
Quarter: 2008Q2

REPORT INFORMATION
  Report Type: 
  Country: None (occurrence: None)
  Receive Date: 20080530
  Receipt Date: 20080520
  Transmission Date: 20081010
  Serious: Yes (Death)
  Sender: FDA-Public Use
  Company Number: GXKR2008FR04622

PATIENT
  Age: 48 Year
  Sex: Female

DRUGS (6)
  1. RIBAVIRIN [Suspect]
     Indication: HEPATITIS C
     Dosage: 10.3 MG/KG
     Dates: start: 20050101
  2. PEGINTERFERON ALFA-2B (PEGINTERFERON ALFA-2B) [Suspect]
     Indication: HEPATITIS C
     Dosage: 1.5 UG/KG, QW
  3. PAROXETINE HCL [Concomitant]
  4. RITONAVIR (RITONAVIR) [Concomitant]
  5. ATAZANAVIR SULFATE [Concomitant]
  6. EFAVIRENZ [Concomitant]

REACTIONS (11)
  - ARTHRALGIA [None]
  - AUTOIMMUNE HEPATITIS [None]
  - CHOLANGITIS [None]
  - DIALYSIS [None]
  - HEPATIC ENCEPHALOPATHY [None]
  - HYPERGAMMAGLOBULINAEMIA [None]
  - MULTI-ORGAN FAILURE [None]
  - MYALGIA [None]
  - PLATELET DISORDER [None]
  - PURPURA [None]
  - SEPSIS [None]
